FAERS Safety Report 5190925-4 (Version None)
Quarter: 2006Q4

REPORT INFORMATION
  Report Type: 
  Country: None (occurrence: None)
  Receive Date: 20061222
  Receipt Date: 20020912
  Transmission Date: 20070319
  Serious: Yes (Hospitalization, Other)
  Sender: FDA-Public Use
  Company Number: US-BRISTOL-MYERS SQUIBB COMPANY-12035143

PATIENT
  Age: 2 Month
  Sex: Male
  Weight: 3 kg

DRUGS (6)
  1. ZERIT [Suspect]
     Dosage: EXPOSURE FROM WEEK 26 OF GESTATION.
     Route: 064
     Dates: end: 19980724
  2. VIDEX [Suspect]
     Dosage: EXPOSURE FROM WEEK 26 OF GESTATION.
     Route: 064
     Dates: end: 19980724
  3. ZERIT [Suspect]
  4. VIDEX [Suspect]
  5. INVIRASE [Suspect]
     Dosage: EXPOSURE FROM WEEK 26 OF GESTATION.
     Route: 064
     Dates: end: 19980724
  6. NORVIR [Suspect]
     Dosage: EXPOSURE FROM WEEK 26 OF GESTATION.
     Route: 064
     Dates: end: 19980724

REACTIONS (6)
  - ANAEMIA [None]
  - CAESAREAN SECTION [None]
  - HEARING IMPAIRED [None]
  - HYPERTRIGLYCERIDAEMIA [None]
  - HYPOTONIA [None]
  - PREGNANCY [None]
